FAERS Safety Report 19106377 (Version 4)
Quarter: 2021Q3

REPORT INFORMATION
  Report Type: Spontaneous
  Country: JP (occurrence: JP)
  Receive Date: 20210408
  Receipt Date: 20210707
  Transmission Date: 20211014
  Serious: Yes (Hospitalization, Other)
  Sender: FDA-Public Use
  Company Number: JP-BRISTOL-MYERS SQUIBB COMPANY-BMS-2021-031514

PATIENT
  Age: 7 Decade
  Sex: Male

DRUGS (2)
  1. OPDIVO [Suspect]
     Active Substance: NIVOLUMAB
     Indication: METASTATIC RENAL CELL CARCINOMA
     Dosage: UNK
     Route: 041
     Dates: start: 20201211
  2. YERVOY [Suspect]
     Active Substance: IPILIMUMAB
     Indication: METASTATIC RENAL CELL CARCINOMA
     Dosage: UNK
     Route: 041
     Dates: start: 20201211

REACTIONS (3)
  - Altered state of consciousness [Recovering/Resolving]
  - Headache [Recovering/Resolving]
  - Encephalitis [Recovering/Resolving]

NARRATIVE: CASE EVENT DATE: 2021
